FAERS Safety Report 9124285 (Version 2)
Quarter: 2013Q1

REPORT INFORMATION
  Report Type: Spontaneous
  Country: US (occurrence: US)
  Receive Date: 20130116
  Receipt Date: 20130305
  Transmission Date: 20140127
  Serious: Yes (Other)
  Sender: FDA-Public Use
  Company Number: US-PFIZER INC-2013017521

PATIENT
  Age: 51 Year
  Sex: Female
  Weight: 82.09 kg

DRUGS (9)
  1. LYRICA [Suspect]
     Indication: FIBROMYALGIA
     Dosage: 75 MG, 2X/DAY
     Route: 048
  2. DOXEPIN [Concomitant]
     Indication: DEPRESSION
     Dosage: UNK
  3. LISINOPRIL [Concomitant]
     Dosage: UNK
  4. PRAVASTATIN [Concomitant]
     Dosage: UNK
  5. LORTAB [Concomitant]
     Dosage: UNK
  6. SOMA [Concomitant]
     Dosage: UNK
  7. VESICARE [Concomitant]
     Dosage: UNK
  8. NEXIUM [Concomitant]
     Dosage: UNK
  9. CYMBALTA [Concomitant]
     Dosage: UNK

REACTIONS (8)
  - Spinal column stenosis [Unknown]
  - Blood cholesterol increased [Unknown]
  - Fibromyalgia [Unknown]
  - Withdrawal syndrome [Unknown]
  - Night sweats [Unknown]
  - Restless legs syndrome [Unknown]
  - Insomnia [Unknown]
  - Pain [Unknown]
